FAERS Safety Report 15843396 (Version 3)
Quarter: 2019Q1

REPORT INFORMATION
  Report Type: Report from Study
  Country: US (occurrence: US)
  Receive Date: 20190118
  Receipt Date: 20190219
  Transmission Date: 20190417
  Serious: Yes (Other)
  Sender: FDA-Public Use
  Company Number: US-GILEAD-2019-0384110

PATIENT
  Age: 66 Year
  Sex: Female

DRUGS (1)
  1. AMBRISENTAN [Suspect]
     Active Substance: AMBRISENTAN
     Indication: PRODUCT USED FOR UNKNOWN INDICATION
     Dosage: 5 MG, QD
     Route: 065
     Dates: start: 20180223

REACTIONS (5)
  - Nasopharyngitis [Unknown]
  - Upper limb fracture [Unknown]
  - Product use issue [Not Recovered/Not Resolved]
  - Elbow operation [Unknown]
  - Fall [Unknown]

NARRATIVE: CASE EVENT DATE: 201901
